FAERS Safety Report 5401133-3 (Version None)
Quarter: 2007Q3

REPORT INFORMATION
  Report Type: 
  Country: None (occurrence: None)
  Receive Date: 20070731
  Receipt Date: 20070720
  Transmission Date: 20080115
  Serious: Yes (Other)
  Sender: FDA-Public Use
  Company Number: PHFR2007MT02243

PATIENT
  Sex: Female

DRUGS (4)
  1. COVERSYL                                /BEL/ [Concomitant]
     Route: 065
  2. BURINEX [Concomitant]
     Route: 065
  3. ZOMIG [Concomitant]
     Route: 065
  4. LESCOL XL [Suspect]
     Indication: HYPERLIPIDAEMIA
     Dosage: 80MG / DAY
     Route: 048
     Dates: start: 20070401

REACTIONS (5)
  - BLOOD CALCIUM INCREASED [None]
  - DRY MOUTH [None]
  - MUSCULAR WEAKNESS [None]
  - PARAESTHESIA [None]
  - TRISMUS [None]
